FAERS Safety Report 5021837-4 (Version None)
Quarter: 2006Q2

REPORT INFORMATION
  Report Type: 
  Country: None (occurrence: None)
  Receive Date: 20060425
  Receipt Date: 20060313
  Transmission Date: 20061013
  Serious: Yes (Other)
  Sender: FDA-Public Use
  Company Number: 222172

PATIENT
  Age: 55 Year
  Sex: Female

DRUGS (8)
  1. XOLAIR [Suspect]
     Indication: ASTHMA
     Dosage: 150 MG, 1/MONTH
     Dates: start: 20041222
  2. FLOVENT [Concomitant]
  3. SEREVENT [Concomitant]
  4. LISINOPRIL [Concomitant]
  5. LEVOXYL [Concomitant]
  6. COMBIVENT (ALBUTEROL, ALBUTEROL SULFATE, IPRATROPIUM BROMIDE) [Concomitant]
  7. FOSAMAX [Concomitant]
  8. NEXIUM [Concomitant]

REACTIONS (1)
  - OVARIAN CANCER [None]
